FAERS Safety Report 5252520-8 (Version None)
Quarter: 2007Q1

REPORT INFORMATION
  Report Type: 
  Country: None (occurrence: None)
  Receive Date: 20070301
  Receipt Date: 20070124
  Transmission Date: 20070707
  Serious: Yes (Hospitalization)
  Sender: FDA-Public Use
  Company Number: US-BRISTOL-MYERS SQUIBB COMPANY-13655766

PATIENT
  Sex: Male
  Weight: 58 kg

DRUGS (1)
  1. CETUXIMAB [Suspect]
     Indication: NEOPLASM MALIGNANT
     Route: 042
     Dates: start: 20070109

REACTIONS (2)
  - ANAEMIA [None]
  - FATIGUE [None]
